FAERS Safety Report 17527590 (Version 2)
Quarter: 2020Q1

REPORT INFORMATION
  Report Type: Spontaneous
  Country: US (occurrence: US)
  Receive Date: 20200311
  Receipt Date: 20200316
  Transmission Date: 20200409
  Serious: No
  Sender: FDA-Public Use
  Company Number: US-JNJFOC-20200307323

PATIENT
  Age: 54 Year
  Sex: Female
  Weight: 100.18 kg

DRUGS (1)
  1. STELARA [Suspect]
     Active Substance: USTEKINUMAB
     Indication: CROHN^S DISEASE
     Route: 058
     Dates: start: 20190514

REACTIONS (3)
  - Needle issue [Unknown]
  - Product dose omission [Unknown]
  - Medication error [Unknown]

NARRATIVE: CASE EVENT DATE: 20200303
